FAERS Safety Report 13602610 (Version 2)
Quarter: 2017Q3

REPORT INFORMATION
  Report Type: Spontaneous
  Country: JP (occurrence: JP)
  Receive Date: 20170601
  Receipt Date: 20170726
  Transmission Date: 20171127
  Serious: Yes (Other)
  Sender: FDA-Public Use
  Company Number: JP-BAYER-2017-100031

PATIENT
  Age: 34 Year
  Sex: Male
  Weight: 56 kg

DRUGS (33)
  1. MAGNEVIST [Suspect]
     Active Substance: GADOPENTETATE DIMEGLUMINE
     Indication: NEUROFIBROMATOSIS
     Dosage: 20 ML, ONCE
     Route: 042
     Dates: start: 20051129, end: 20051129
  2. MAGNEVIST [Suspect]
     Active Substance: GADOPENTETATE DIMEGLUMINE
     Indication: SCAN WITH CONTRAST
     Dosage: 20 ML, ONCE
     Route: 042
     Dates: start: 20060814, end: 20060814
  3. MAGNEVIST [Suspect]
     Active Substance: GADOPENTETATE DIMEGLUMINE
     Indication: SCAN WITH CONTRAST
     Dosage: 15 ML, ONCE
     Route: 042
     Dates: start: 20080523, end: 20080523
  4. MAGNEVIST [Suspect]
     Active Substance: GADOPENTETATE DIMEGLUMINE
     Indication: SCAN WITH CONTRAST
     Dosage: 15 ML, ONCE
     Route: 042
     Dates: start: 20091202, end: 20091202
  5. MAGNEVIST [Suspect]
     Active Substance: GADOPENTETATE DIMEGLUMINE
     Indication: SCAN WITH CONTRAST
     Dosage: 15 ML, ONCE
     Route: 042
     Dates: start: 20100818, end: 20100818
  6. MAGNEVIST [Suspect]
     Active Substance: GADOPENTETATE DIMEGLUMINE
     Indication: SCAN WITH CONTRAST
     Dosage: 20 ML, ONCE
     Route: 042
     Dates: start: 20110831, end: 20110831
  7. MAGNEVIST [Suspect]
     Active Substance: GADOPENTETATE DIMEGLUMINE
     Indication: SCAN WITH CONTRAST
     Dosage: 15 ML, ONCE
     Route: 042
     Dates: start: 20130826, end: 20130826
  8. MAGNEVIST [Suspect]
     Active Substance: GADOPENTETATE DIMEGLUMINE
     Indication: SCAN WITH CONTRAST
     Dosage: 15 ML, ONCE
     Route: 042
     Dates: start: 20141020, end: 20141020
  9. MAGNEVIST [Suspect]
     Active Substance: GADOPENTETATE DIMEGLUMINE
     Indication: SCAN WITH CONTRAST
     Dosage: 20 ML, ONCE
     Route: 042
     Dates: start: 20161219, end: 20161219
  10. MAGNEVIST [Suspect]
     Active Substance: GADOPENTETATE DIMEGLUMINE
     Indication: SCAN WITH CONTRAST
     Dosage: 20 ML, ONCE
     Route: 042
     Dates: start: 20070423, end: 20070423
  11. MAGNEVIST [Suspect]
     Active Substance: GADOPENTETATE DIMEGLUMINE
     Indication: SCAN WITH CONTRAST
     Dosage: 15 ML, ONCE
     Route: 042
     Dates: start: 20080225, end: 20080225
  12. MAGNEVIST [Suspect]
     Active Substance: GADOPENTETATE DIMEGLUMINE
     Indication: SCAN WITH CONTRAST
     Dosage: 15 ML, ONCE
     Route: 042
     Dates: start: 20080514, end: 20080514
  13. MAGNEVIST [Suspect]
     Active Substance: GADOPENTETATE DIMEGLUMINE
     Indication: SCAN WITH CONTRAST
     Dosage: 15 ML, ONCE
     Route: 042
     Dates: start: 20110303, end: 20110303
  14. MAGNEVIST [Suspect]
     Active Substance: GADOPENTETATE DIMEGLUMINE
     Indication: SCAN WITH CONTRAST
     Dosage: 15 ML, ONCE
     Route: 042
     Dates: start: 20140616, end: 20140616
  15. MAGNEVIST [Suspect]
     Active Substance: GADOPENTETATE DIMEGLUMINE
     Indication: SCAN WITH CONTRAST
     Dosage: 15 ML, ONCE
     Route: 042
     Dates: start: 20140825, end: 20140825
  16. MAGNEVIST [Suspect]
     Active Substance: GADOPENTETATE DIMEGLUMINE
     Indication: SCAN WITH CONTRAST
     Dosage: 20 ML, ONCE
     Route: 042
     Dates: start: 20060303, end: 20060303
  17. MAGNEVIST [Suspect]
     Active Substance: GADOPENTETATE DIMEGLUMINE
     Indication: SCAN WITH CONTRAST
     Dosage: 15 ML, ONCE
     Route: 042
     Dates: start: 20090325, end: 20090325
  18. MAGNEVIST [Suspect]
     Active Substance: GADOPENTETATE DIMEGLUMINE
     Indication: SCAN WITH CONTRAST
     Dosage: 20 ML, ONCE
     Route: 042
     Dates: start: 20090810, end: 20090810
  19. MAGNEVIST [Suspect]
     Active Substance: GADOPENTETATE DIMEGLUMINE
     Indication: SCAN WITH CONTRAST
     Dosage: 20 ML, ONCE
     Route: 042
     Dates: start: 20061227, end: 20061227
  20. MAGNEVIST [Suspect]
     Active Substance: GADOPENTETATE DIMEGLUMINE
     Indication: SCAN WITH CONTRAST
     Dosage: 20 ML, ONCE
     Route: 042
     Dates: start: 20070905, end: 20070905
  21. MAGNEVIST [Suspect]
     Active Substance: GADOPENTETATE DIMEGLUMINE
     Indication: SCAN WITH CONTRAST
     Dosage: 15 ML, ONCE
     Route: 042
     Dates: start: 20080714, end: 20080714
  22. MAGNEVIST [Suspect]
     Active Substance: GADOPENTETATE DIMEGLUMINE
     Indication: SCAN WITH CONTRAST
     Dosage: 15 ML, ONCE
     Route: 042
     Dates: start: 20100222, end: 20100222
  23. MAGNESCOPE [Suspect]
     Active Substance: GADOTERATE MEGLUMINE
     Indication: SCAN WITH CONTRAST
     Dosage: 24 GBCA ENHANCED STUDIES
  24. MAGNEVIST [Suspect]
     Active Substance: GADOPENTETATE DIMEGLUMINE
     Indication: SCAN WITH CONTRAST
     Dosage: 15 ML, ONCE
     Route: 042
     Dates: start: 20090116, end: 20090216
  25. MAGNEVIST [Suspect]
     Active Substance: GADOPENTETATE DIMEGLUMINE
     Indication: SCAN WITH CONTRAST
     Dosage: 20 ML, ONCE
     Route: 042
     Dates: start: 20110216, end: 20110216
  26. MAGNEVIST [Suspect]
     Active Substance: GADOPENTETATE DIMEGLUMINE
     Indication: SCAN WITH CONTRAST
     Dosage: 15 ML, ONCE
     Route: 042
     Dates: start: 20150223, end: 20150223
  27. PROHANCE [Suspect]
     Active Substance: GADOTERIDOL
     Indication: SCAN WITH CONTRAST
     Dosage: 3 GBCA ENHANCED STUDIES
  28. MAGNEVIST [Suspect]
     Active Substance: GADOPENTETATE DIMEGLUMINE
     Indication: SCAN WITH CONTRAST
     Dosage: 15 ML, ONCE
     Route: 042
     Dates: start: 20120222, end: 20120222
  29. MAGNEVIST [Suspect]
     Active Substance: GADOPENTETATE DIMEGLUMINE
     Indication: SCAN WITH CONTRAST
     Dosage: 20 ML, ONCE
     Route: 042
     Dates: start: 20160118, end: 20160118
  30. MAGNEVIST [Suspect]
     Active Substance: GADOPENTETATE DIMEGLUMINE
     Indication: SCAN WITH CONTRAST
     Dosage: 20 ML, ONCE
     Route: 042
     Dates: start: 20051109, end: 20051109
  31. MAGNEVIST [Suspect]
     Active Substance: GADOPENTETATE DIMEGLUMINE
     Indication: SCAN WITH CONTRAST
     Dosage: 10 ML, ONCE
     Route: 042
     Dates: start: 20100113, end: 20100113
  32. MAGNEVIST [Suspect]
     Active Substance: GADOPENTETATE DIMEGLUMINE
     Indication: SCAN WITH CONTRAST
     Dosage: 15 ML, ONCE
     Route: 042
     Dates: start: 20120827, end: 20120827
  33. MAGNEVIST [Suspect]
     Active Substance: GADOPENTETATE DIMEGLUMINE
     Indication: SCAN WITH CONTRAST
     Dosage: 15 ML, ONCE
     Route: 042
     Dates: start: 20140324, end: 20140324

REACTIONS (2)
  - Contrast media deposition [None]
  - Hyperintensity in brain deep nuclei [None]
